FAERS Safety Report 8338172-9 (Version None)
Quarter: 2012Q2

REPORT INFORMATION
  Report Type: 
  Country: None (occurrence: None)
  Receive Date: 20120504
  Receipt Date: 20120430
  Transmission Date: 20120825
  Serious: Yes (Life-Threatening, Hospitalization, Other)
  Sender: FDA-Public Use
  Company Number: GB-ASTRAZENECA-2012SE00356

PATIENT
  Age: 61 Year
  Sex: Female

DRUGS (16)
  1. LOSARTAN POTASSIUM [Concomitant]
  2. PIOGLITAZONE [Concomitant]
  3. TRIAMCINOLONE ACETONIDE [Suspect]
     Route: 014
     Dates: start: 20111201, end: 20111201
  4. SIMVASTATIN [Concomitant]
  5. TRIMETHOPRIM [Concomitant]
  6. CHIROCAINE [Suspect]
     Indication: LOCAL ANAESTHESIA
     Dosage: 50MG/5ML, ONE DF
     Route: 040
     Dates: start: 20111214
  7. VENTOLIN [Concomitant]
     Dosage: 5
     Dates: start: 20111214
  8. LIDOCAINE [Suspect]
     Indication: LOCAL ANAESTHESIA
     Dosage: 10 MG/ML, 10 ML
     Route: 040
     Dates: start: 20111214
  9. DEXAMETHASONE [Concomitant]
     Dosage: 10
     Dates: start: 20111214
  10. GLICLAZIDE [Concomitant]
  11. METFORMIN HCL [Concomitant]
  12. OXYGEN [Concomitant]
     Dates: start: 20111214
  13. CHIROCAINE [Suspect]
     Dosage: FIVE DF
     Route: 040
     Dates: start: 20111214
  14. FUROSEMIDE [Concomitant]
  15. HYDROCORTISONE [Concomitant]
     Dosage: 100
     Dates: start: 20111214
  16. CHLORPHENIRAMINE MALEATE [Concomitant]
     Dosage: 10
     Dates: start: 20111214

REACTIONS (16)
  - ALLERGY TEST POSITIVE [None]
  - ANGIOEDEMA [None]
  - PHARYNGEAL OEDEMA [None]
  - TACHYCARDIA [None]
  - EYE SWELLING [None]
  - SWOLLEN TONGUE [None]
  - FEELING HOT [None]
  - LIP SWELLING [None]
  - FLUSHING [None]
  - VISION BLURRED [None]
  - SYNCOPE [None]
  - URTICARIA [None]
  - ANAPHYLACTIC REACTION [None]
  - DYSPNOEA [None]
  - HYPERSENSITIVITY [None]
  - MALAISE [None]
